FAERS Safety Report 20985394 (Version 1)
Quarter: 2022Q2

REPORT INFORMATION
  Report Type: Spontaneous
  Country: JP (occurrence: JP)
  Receive Date: 20220621
  Receipt Date: 20220621
  Transmission Date: 20220721
  Serious: Yes (Hospitalization, Other)
  Sender: FDA-Public Use
  Company Number: JP-TAKEDA-2022TJP049334

PATIENT
  Age: 29 Year
  Sex: Female

DRUGS (1)
  1. ENTYVIO [Suspect]
     Active Substance: VEDOLIZUMAB
     Indication: Pouchitis
     Dosage: UNK
     Route: 050

REACTIONS (4)
  - Erythema nodosum [Recovered/Resolved]
  - Arthritis reactive [Recovered/Resolved]
  - Meningitis bacterial [Recovered/Resolved]
  - Thyroiditis subacute [Recovered/Resolved]
